FAERS Safety Report 5960345-0 (Version None)
Quarter: 2008Q4

REPORT INFORMATION
  Report Type: 
  Country: None (occurrence: None)
  Receive Date: 20081120
  Receipt Date: 20081107
  Transmission Date: 20090506
  Serious: Yes (Hospitalization, Other)
  Sender: FDA-Public Use
  Company Number: US-ELI_LILLY_AND_COMPANY-US200811001740

PATIENT
  Sex: Female

DRUGS (18)
  1. FORTEO [Suspect]
     Dosage: 20 UG, DAILY (1/D)
     Dates: start: 20080301
  2. RYTHMOL [Concomitant]
  3. CELEBREX [Concomitant]
  4. TIAZAC [Concomitant]
  5. ATACAND [Concomitant]
  6. DARVOCET [Concomitant]
  7. LEUKERIN [Concomitant]
  8. ASPIRIN [Concomitant]
  9. FOLIC ACID [Concomitant]
  10. ZINC [Concomitant]
  11. OSCAL [Concomitant]
  12. MULTI-VITAMIN [Concomitant]
  13. ZANTAC [Concomitant]
  14. WELLBUTRIN [Concomitant]
  15. COUMADIN [Concomitant]
  16. XANAX [Concomitant]
  17. LEVAQUIN [Concomitant]
  18. LIPITOR [Concomitant]

REACTIONS (10)
  - CAROTID ARTERY OCCLUSION [None]
  - CONFUSIONAL STATE [None]
  - DEPRESSION [None]
  - DISORIENTATION [None]
  - HOSPITALISATION [None]
  - MEMORY IMPAIRMENT [None]
  - NASOPHARYNGITIS [None]
  - RIB FRACTURE [None]
  - ROAD TRAFFIC ACCIDENT [None]
  - SPINAL FRACTURE [None]
